FAERS Safety Report 15077229 (Version 4)
Quarter: 2018Q3

REPORT INFORMATION
  Report Type: Report from Study
  Country: US (occurrence: US)
  Receive Date: 20180627
  Receipt Date: 20180928
  Transmission Date: 20181010
  Serious: Yes (Hospitalization, Other)
  Sender: FDA-Public Use
  Company Number: US-ACTELION-A-US2018-174265

PATIENT
  Age: 67 Year
  Sex: Female

DRUGS (4)
  1. REVATIO [Concomitant]
     Active Substance: SILDENAFIL CITRATE
  2. OPSUMIT [Suspect]
     Active Substance: MACITENTAN
     Indication: PULMONARY ARTERIAL HYPERTENSION
     Dosage: 10 MG, QD
     Route: 048
     Dates: start: 20131203
  3. ADEMPAS [Concomitant]
     Active Substance: RIOCIGUAT
  4. FLOLAN [Concomitant]
     Active Substance: EPOPROSTENOL SODIUM

REACTIONS (12)
  - Clostridium difficile infection [Unknown]
  - Condition aggravated [Unknown]
  - Pulmonary arterial hypertension [Unknown]
  - Ascites [Unknown]
  - Blood potassium decreased [Unknown]
  - Electrolyte imbalance [Unknown]
  - Arrhythmia [Not Recovered/Not Resolved]
  - Blood magnesium decreased [Unknown]
  - Thrombosis [Unknown]
  - Fluid retention [Unknown]
  - Diagnostic procedure [Unknown]
  - Paracentesis [Unknown]

NARRATIVE: CASE EVENT DATE: 20180618
